FAERS Safety Report 8418926-0 (Version None)
Quarter: 2012Q2

REPORT INFORMATION
  Report Type: 
  Country: None (occurrence: None)
  Receive Date: 20120607
  Receipt Date: 20120530
  Transmission Date: 20120825
  Serious: Yes (Hospitalization, Other)
  Sender: FDA-Public Use
  Company Number: PHHY2011CA43626

PATIENT
  Sex: Female

DRUGS (2)
  1. ZOLEDRONOC ACID [Suspect]
     Dosage: UNK UKN, UNK
     Route: 042
     Dates: start: 20110727
  2. ZOLEDRONOC ACID [Suspect]
     Indication: OSTEOPOROSIS
     Dosage: UNK UKN, UNK
     Route: 042
     Dates: start: 20100726

REACTIONS (10)
  - NERVE INJURY [None]
  - SPINAL FRACTURE [None]
  - VENOUS INJURY [None]
  - PNEUMONIA [None]
  - BODY HEIGHT DECREASED [None]
  - COUGH [None]
  - ABASIA [None]
  - UPPER LIMB FRACTURE [None]
  - FEAR [None]
  - SKIN MASS [None]
